FAERS Safety Report 16560289 (Version 2)
Quarter: 2019Q3

REPORT INFORMATION
  Report Type: Report from Study
  Country: US (occurrence: US)
  Receive Date: 20190711
  Receipt Date: 20190925
  Transmission Date: 20191004
  Serious: No
  Sender: FDA-Public Use
  Company Number: US-ROCHE-2351389

PATIENT
  Age: 60 Year
  Sex: Female
  Weight: 49.03 kg

DRUGS (12)
  1. LYRICA [Concomitant]
     Active Substance: PREGABALIN
     Indication: NEURALGIA
     Dosage: YES
     Route: 048
  2. BENADRYL [Concomitant]
     Active Substance: DIPHENHYDRAMINE HYDROCHLORIDE
     Dosage: INCREASED DOSE ;ONGOING: NO
     Route: 048
     Dates: start: 20190101
  3. BENADRYL [Concomitant]
     Active Substance: DIPHENHYDRAMINE HYDROCHLORIDE
     Dosage: YES
     Route: 042
     Dates: start: 20190601
  4. TYSABRI [Concomitant]
     Active Substance: NATALIZUMAB
  5. DITROPAN [Concomitant]
     Active Substance: OXYBUTYNIN CHLORIDE
     Indication: BLADDER SPASM
     Dosage: STARTED MAYBE 8 YEARS AGO ;ONGOING: YES
     Route: 048
  6. SOLU-MEDROL [Concomitant]
     Active Substance: METHYLPREDNISOLONE SODIUM SUCCINATE
     Dosage: NO
     Route: 042
     Dates: start: 20181231
  7. AVONEX [Concomitant]
     Active Substance: INTERFERON BETA-1A
  8. BENADRYL [Concomitant]
     Active Substance: DIPHENHYDRAMINE HYDROCHLORIDE
     Dosage: NO
     Route: 048
     Dates: start: 20181231
  9. OCREVUS [Suspect]
     Active Substance: OCRELIZUMAB
     Indication: RELAPSING-REMITTING MULTIPLE SCLEROSIS
     Dosage: YES
     Route: 042
     Dates: start: 20181231
  10. SOLU-MEDROL [Concomitant]
     Active Substance: METHYLPREDNISOLONE SODIUM SUCCINATE
     Dosage: INCREASED DOSE ;ONGOING: UNKNOWN
     Route: 042
     Dates: start: 20190101
  11. BACLOFEN. [Concomitant]
     Active Substance: BACLOFEN
     Indication: MUSCLE SPASMS
     Dosage: YES
     Route: 048
  12. ARMOUR THYROID [Concomitant]
     Active Substance: THYROID, PORCINE
     Indication: HYPOTHYROIDISM
     Dosage: YES
     Route: 048
     Dates: start: 20140101

REACTIONS (4)
  - Oral herpes [Not Recovered/Not Resolved]
  - Insomnia [Recovered/Resolved]
  - Fatigue [Not Recovered/Not Resolved]
  - Pruritus [Recovered/Resolved]

NARRATIVE: CASE EVENT DATE: 20181231
